FAERS Safety Report 8816428 (Version 1)
Quarter: 2012Q4

REPORT INFORMATION
  Report Type: Spontaneous
  Country: GB (occurrence: None)
  Receive Date: 20120927
  Receipt Date: 20120927
  Transmission Date: 20130627
  Serious: Yes (Other)
  Sender: FDA-Public Use
  Company Number: GER/UKI/12/0025941

PATIENT
  Age: 13 Year
  Sex: Male
  Weight: 57.3 kg

DRUGS (5)
  1. OLANZAPINE [Suspect]
     Indication: PSYCHOSIS
     Route: 048
     Dates: start: 20120415
  2. OLANZAPINE [Suspect]
     Indication: PSYCHOSIS
     Route: 048
     Dates: start: 20120515
  3. DIAZEPAM (DIAZEPAM) [Concomitant]
  4. HYOSCINE HYDROBROMIDE (HYOSCINE HYDROBROMIDE) [Concomitant]
  5. LORAZEPAM (LORAZEPAM) [Concomitant]

REACTIONS (3)
  - Liver injury [None]
  - Drug level above therapeutic [None]
  - Blood alkaline phosphatase increased [None]
